FAERS Safety Report 11535590 (Version 1)
Quarter: 2015Q3

REPORT INFORMATION
  Report Type: Spontaneous
  Country: US (occurrence: US)
  Receive Date: 20150922
  Receipt Date: 20150922
  Transmission Date: 20151125
  Serious: No
  Sender: FDA-Public Use
  Company Number: US-BIOGENIDEC-2015BI128428

PATIENT
  Sex: Female

DRUGS (1)
  1. TECFIDERA [Suspect]
     Active Substance: DIMETHYL FUMARATE
     Indication: MULTIPLE SCLEROSIS

REACTIONS (7)
  - Muscular weakness [Unknown]
  - Cognitive disorder [Unknown]
  - Muscle spasticity [Unknown]
  - Faecal incontinence [Unknown]
  - Hypertonic bladder [Unknown]
  - Urinary incontinence [Unknown]
  - Gait disturbance [Unknown]
